FAERS Safety Report 15518674 (Version 1)
Quarter: 2018Q4

REPORT INFORMATION
  Report Type: Spontaneous
  Country: US (occurrence: US)
  Receive Date: 20181017
  Receipt Date: 20181017
  Transmission Date: 20190205
  Serious: No
  Sender: FDA-Public Use
  Company Number: US-SA-2018SA284492

PATIENT
  Age: 67 Year
  Sex: Male

DRUGS (1)
  1. LANTUS [Suspect]
     Active Substance: INSULIN GLARGINE
     Dosage: 32 UNITS IN THE MORNING AND 30 UNITS AT NIGHT

REACTIONS (4)
  - Inappropriate schedule of product administration [Unknown]
  - Product dose omission [Unknown]
  - Device breakage [Unknown]
  - Contusion [Unknown]
